FAERS Safety Report 7904116-4 (Version None)
Quarter: 2011Q4

REPORT INFORMATION
  Report Type: 
  Country: None (occurrence: None)
  Receive Date: 20111109
  Receipt Date: 20111026
  Transmission Date: 20120403
  Serious: Yes (Hospitalization)
  Sender: FDA-Public Use
  Company Number: JP-EISAI INC-E2090-01779-SPO-JP

PATIENT
  Sex: Male

DRUGS (12)
  1. ZONISAMIDE [Suspect]
     Dates: start: 20040929, end: 20110905
  2. LAC-B [Concomitant]
  3. BANAN [Concomitant]
     Dosage: 300 MG DAILY
     Dates: start: 20110101
  4. ZONISAMIDE [Suspect]
     Route: 065
     Dates: start: 20110913, end: 20110929
  5. MIYA BM [Concomitant]
  6. FAMOTIDINE [Concomitant]
  7. PLETAAL OD [Concomitant]
  8. GASMOTIN [Concomitant]
  9. ZONISAMIDE [Suspect]
     Dosage: 400 MG DAILY
     Route: 065
     Dates: start: 20110930, end: 20111003
  10. ZONISAMIDE [Suspect]
     Dosage: 300 MG DAILY
     Route: 065
     Dates: start: 20111004
  11. HOKUNALIN:TAPE [Concomitant]
  12. KEPPRA [Concomitant]
     Dosage: 1000 MG DAILY
     Dates: start: 20111007

REACTIONS (2)
  - PYREXIA [None]
  - HYPERNATRAEMIA [None]
